FAERS Safety Report 5178419-3 (Version None)
Quarter: 2006Q4

REPORT INFORMATION
  Report Type: 
  Country: None (occurrence: None)
  Receive Date: 20061218
  Receipt Date: 20060823
  Transmission Date: 20070319
  Serious: No
  Sender: FDA-Public Use
  Company Number: US-AMGEN-KDL191011

PATIENT
  Sex: Female

DRUGS (1)
  1. ENBREL [Suspect]
     Indication: RHEUMATOID ARTHRITIS
     Route: 058
     Dates: start: 20030501

REACTIONS (5)
  - ARTHRALGIA [None]
  - BACK PAIN [None]
  - FATIGUE [None]
  - MUSCULOSKELETAL PAIN [None]
  - PYREXIA [None]
